FAERS Safety Report 6192612-2 (Version None)
Quarter: 2009Q2

REPORT INFORMATION
  Report Type: 
  Country: None (occurrence: None)
  Receive Date: 20090518
  Receipt Date: 20080922
  Transmission Date: 20091009
  Serious: Yes (Hospitalization)
  Sender: FDA-Public Use
  Company Number: US-JNJFOC-20080905631

PATIENT
  Sex: Male
  Weight: 79.38 kg

DRUGS (12)
  1. IBUPROFEN [Suspect]
     Route: 048
  2. IBUPROFEN [Suspect]
     Indication: DRUG USE FOR UNKNOWN INDICATION
     Route: 048
  3. GLIPIZIDE [Concomitant]
  4. LANTUS [Concomitant]
     Dosage: IN THE EVENING
  5. PLAVIX [Concomitant]
  6. ASPIRIN [Concomitant]
  7. ATENOLOL [Concomitant]
  8. FLOMAX [Concomitant]
  9. LISINOPRIL [Concomitant]
  10. PLETAL [Concomitant]
  11. MULTI-VITAMIN [Concomitant]
  12. SPIRONOLACTONE [Concomitant]

REACTIONS (1)
  - ULCER HAEMORRHAGE [None]
